FAERS Safety Report 14238497 (Version 5)
Quarter: 2018Q2

REPORT INFORMATION
  Report Type: Spontaneous
  Country: CA (occurrence: CA)
  Receive Date: 20171130
  Receipt Date: 20180518
  Transmission Date: 20180711
  Serious: Yes (Other)
  Sender: FDA-Public Use
  Company Number: CA-CELLTRION INC.-2017CA016468

PATIENT

DRUGS (13)
  1. INFLECTRA [Suspect]
     Active Substance: INFLIXIMAB-DYYB
     Dosage: 357.5 MG, UNK
     Route: 065
     Dates: start: 20171121
  2. HUMIRA [Concomitant]
     Active Substance: ADALIMUMAB
  3. ALFUZOSIN [Concomitant]
     Active Substance: ALFUZOSIN
  4. ALOPURINOL [Concomitant]
     Active Substance: ALLOPURINOL
  5. PENTASA [Concomitant]
     Active Substance: MESALAMINE
  6. SIMPONI [Concomitant]
     Active Substance: GOLIMUMAB
  7. ASACOL [Concomitant]
     Active Substance: MESALAMINE
  8. INFLECTRA [Suspect]
     Active Substance: INFLIXIMAB-DYYB
     Indication: COLITIS ULCERATIVE
     Dosage: 5 MG/KG, CYCLIC(EVERY 2, 6 WEEKS, THEN EVERY 8 WEEKS)
     Route: 042
     Dates: start: 20170816
  9. INFLECTRA [Suspect]
     Active Substance: INFLIXIMAB-DYYB
     Dosage: 5 MG/KG, EVERY 0, 2, 6 WEEKS, THEN EVERY 8  WEEKS
     Dates: start: 20180313
  10. ASA [Concomitant]
     Active Substance: ASPIRIN
  11. TELMISARTAN. [Concomitant]
     Active Substance: TELMISARTAN
  12. PREDNISONE. [Concomitant]
     Active Substance: PREDNISONE
  13. AZATHIOPRINE. [Concomitant]
     Active Substance: AZATHIOPRINE

REACTIONS (7)
  - Colitis ulcerative [Recovering/Resolving]
  - Incorrect dose administered [Unknown]
  - Condition aggravated [Recovering/Resolving]
  - Sinusitis [Unknown]
  - Nasopharyngitis [Unknown]
  - Gout [Unknown]
  - Influenza [Unknown]

NARRATIVE: CASE EVENT DATE: 201711
